FAERS Safety Report 21823066 (Version 1)
Quarter: 2023Q1

REPORT INFORMATION
  Report Type: Spontaneous
  Country: SE (occurrence: SE)
  Receive Date: 20230105
  Receipt Date: 20230105
  Transmission Date: 20230418
  Serious: Yes (Other)
  Sender: FDA-Public Use
  Company Number: None

PATIENT
  Age: 14 Day
  Sex: Male
  Weight: 6 kg

DRUGS (2)
  1. FRAGMIN [Suspect]
     Active Substance: DALTEPARIN SODIUM
     Indication: Caesarean section
     Dosage: 1 DF, 1X/DAY
     Route: 063
     Dates: start: 20220202, end: 20220316
  2. FRAGMIN [Suspect]
     Active Substance: DALTEPARIN SODIUM
     Indication: Thrombosis prophylaxis

REACTIONS (7)
  - Maternal exposure during breast feeding [Recovered/Resolved]
  - Syncope [Recovered/Resolved]
  - Abdominal pain [Recovered/Resolved]
  - Product use issue [Recovered/Resolved]
  - Dyschezia [Recovered/Resolved]
  - Faeces discoloured [Recovered/Resolved]
  - Rectal spasm [Recovered/Resolved]

NARRATIVE: CASE EVENT DATE: 20220202
